FAERS Safety Report 4638728-0 (Version None)
Quarter: 2005Q2

REPORT INFORMATION
  Report Type: 
  Country: None (occurrence: None)
  Receive Date: 20050328
  Receipt Date: 20050110
  Transmission Date: 20051028
  Serious: No
  Sender: FDA-Public Use
  Company Number: US_0502111620

PATIENT
  Age: 12 Year

DRUGS (1)
  1. STRATTERA [Suspect]

REACTIONS (1)
  - DISTURBANCE IN ATTENTION [None]
